FAERS Safety Report 16718451 (Version 1)
Quarter: 2019Q3

REPORT INFORMATION
  Report Type: Spontaneous
  Country: NL (occurrence: NL)
  Receive Date: 20190820
  Receipt Date: 20190820
  Transmission Date: 20191005
  Serious: Yes (Other)
  Sender: FDA-Public Use
  Company Number: NL-TEVA-2019-NL-1093652

PATIENT
  Sex: Female

DRUGS (6)
  1. PASIREOTIDE. [Concomitant]
     Active Substance: PASIREOTIDE
     Indication: PROLACTIN-PRODUCING PITUITARY TUMOUR
     Route: 065
  2. CABERGOLINE. [Suspect]
     Active Substance: CABERGOLINE
     Indication: PROLACTIN-PRODUCING PITUITARY TUMOUR
     Dosage: STARTING DOSE: 0.5 MG/WEEK
     Route: 065
  3. CABERGOLINE. [Suspect]
     Active Substance: CABERGOLINE
     Dosage: 5.0 MG/WEEK FOR 3 MONTHS
     Route: 065
  4. LANREOTIDE [Concomitant]
     Active Substance: LANREOTIDE
     Indication: PROLACTIN-PRODUCING PITUITARY TUMOUR
     Dosage: FORMULATION: AUTOGEL
     Route: 065
  5. CABERGOLINE. [Suspect]
     Active Substance: CABERGOLINE
     Dosage: 3.0 MG/WEEK
     Route: 065
  6. CABERGOLINE. [Suspect]
     Active Substance: CABERGOLINE
     Dosage: 7.0 MG/WEEK
     Route: 065

REACTIONS (1)
  - Heart valve incompetence [Unknown]
